FAERS Safety Report 8563910-X (Version None)
Quarter: 2012Q3

REPORT INFORMATION
  Report Type: 
  Country: None (occurrence: None)
  Receive Date: 20120727
  Receipt Date: 20120727
  Transmission Date: 20120928
  Serious: Yes (Other)
  Sender: FDA-Public Use
  Company Number: None

PATIENT

DRUGS (4)
  1. SUCRALFATE [Suspect]
     Dosage: 1 G FOUR TIMES A DAY PO
     Route: 048
     Dates: start: 20120716, end: 20120718
  2. METOPROLOL TARTRATE [Concomitant]
  3. PRAZOLE [Concomitant]
  4. GLIMEPIRIDE [Concomitant]

REACTIONS (4)
  - SWOLLEN TONGUE [None]
  - PRURITUS [None]
  - DIZZINESS [None]
  - OEDEMA MOUTH [None]
